FAERS Safety Report 7005121-5 (Version None)
Quarter: 2010Q3

REPORT INFORMATION
  Report Type: 
  Country: None (occurrence: None)
  Receive Date: 20100921
  Receipt Date: 20100913
  Transmission Date: 20110219
  Serious: Yes (Other)
  Sender: FDA-Public Use
  Company Number: BE-ASTRAZENECA-2010SE42833

PATIENT
  Age: 7035 Day
  Sex: Female
  Weight: 60 kg

DRUGS (1)
  1. SEROQUEL XR [Suspect]
     Indication: PSYCHOTIC DISORDER
     Route: 048
     Dates: start: 20100601, end: 20100709

REACTIONS (2)
  - NEUTROPENIA [None]
  - NEUTROPHIL COUNT DECREASED [None]
